FAERS Safety Report 5534994-8 (Version None)
Quarter: 2007Q4

REPORT INFORMATION
  Report Type: 
  Country: None (occurrence: None)
  Receive Date: 20071203
  Receipt Date: 20071126
  Transmission Date: 20080405
  Serious: Yes (Other)
  Sender: FDA-Public Use
  Company Number: 2007SP018390

PATIENT
  Age: 63 Year
  Sex: Female
  Weight: 72.5755 kg

DRUGS (3)
  1. DR. SCHOLL'S ONE-STEP CALLUS REMOVERS (40 PCT) [Suspect]
     Indication: HYPERKERATOSIS
     Dosage: TOP
     Route: 061
     Dates: start: 20060630, end: 20060703
  2. SYNTHROID [Concomitant]
  3. PROZAC [Concomitant]

REACTIONS (9)
  - ERYTHEMA [None]
  - MASS [None]
  - OEDEMA PERIPHERAL [None]
  - PAIN [None]
  - PARAKERATOSIS [None]
  - SECRETION DISCHARGE [None]
  - SKIN INFECTION [None]
  - SURGERY [None]
  - THERMAL BURN [None]
